FAERS Safety Report 16045122 (Version 2)
Quarter: 2019Q1

REPORT INFORMATION
  Report Type: Report from Study
  Country: CN (occurrence: CN)
  Receive Date: 20190307
  Receipt Date: 20190320
  Transmission Date: 20190418
  Serious: Yes (Hospitalization)
  Sender: FDA-Public Use
  Company Number: CN-ROCHE-2276992

PATIENT
  Age: 60 Year
  Sex: Male
  Weight: 56 kg

DRUGS (16)
  1. PEMETREXED. [Suspect]
     Active Substance: PEMETREXED
     Indication: NON-SMALL CELL LUNG CANCER STAGE IV
     Dosage: ON 12/FEB/2019, HE RECEIVED THE MOST RECENT DOSE OF PEMETREXED 123.7 MG PRIOR TO AE ONSET
     Route: 042
     Dates: start: 20180820
  2. OMEPRAZOLE. [Concomitant]
     Active Substance: OMEPRAZOLE
     Route: 065
     Dates: start: 20181224, end: 20181226
  3. VITAMIN B6 [Concomitant]
     Active Substance: PYRIDOXINE HYDROCHLORIDE
     Route: 065
     Dates: start: 20181225, end: 20181225
  4. PALONOSETRON HYDROCHLORIDE. [Concomitant]
     Active Substance: PALONOSETRON HYDROCHLORIDE
     Route: 065
     Dates: start: 20181204, end: 20181204
  5. TAMSULOSIN HYDROCHLORIDE. [Concomitant]
     Active Substance: TAMSULOSIN HYDROCHLORIDE
     Indication: BENIGN PROSTATIC HYPERPLASIA
     Route: 065
     Dates: start: 20181218
  6. OMEPRAZOLE. [Concomitant]
     Active Substance: OMEPRAZOLE
     Route: 065
     Dates: start: 20181203, end: 20181205
  7. ALPRAZOLAM. [Concomitant]
     Active Substance: ALPRAZOLAM
     Indication: INSOMNIA
     Route: 065
     Dates: start: 20181218
  8. CISPLATIN. [Suspect]
     Active Substance: CISPLATIN
     Indication: NON-SMALL CELL LUNG CANCER STAGE IV
     Dosage: ON 13/NOV/2018, HE RECEIVED THE MOST RECENT DOSE OF CISPLATIN 814.4 MG PRIOR TO AE ONSET
     Route: 042
     Dates: start: 20180820
  9. PALONOSETRON HYDROCHLORIDE. [Concomitant]
     Active Substance: PALONOSETRON HYDROCHLORIDE
     Route: 065
     Dates: start: 20181225, end: 20181225
  10. OXYMETAZOLINE HYDROCHLORIDE. [Concomitant]
     Active Substance: OXYMETAZOLINE HYDROCHLORIDE
     Route: 065
     Dates: start: 20181213
  11. VITAMIN B12 [Concomitant]
     Active Substance: CYANOCOBALAMIN
     Route: 065
     Dates: start: 20181225, end: 20181225
  12. ATEZOLIZUMAB. [Suspect]
     Active Substance: ATEZOLIZUMAB
     Indication: NON-SMALL CELL LUNG CANCER STAGE IV
     Dosage: ON 12/FEB/2019, HE RECEIVED THE MOST RECENT DOSE OF ATEZOLIZUMAB 1200 MG PRIOR TO AE ONSET.
     Route: 042
     Dates: start: 20180820
  13. APREPITANT. [Concomitant]
     Active Substance: APREPITANT
     Indication: PROPHYLAXIS OF NAUSEA AND VOMITING
     Route: 065
     Dates: start: 20181204, end: 20181206
  14. TAMSULOSIN HYDROCHLORIDE. [Concomitant]
     Active Substance: TAMSULOSIN HYDROCHLORIDE
     Indication: PROSTATIC CALCIFICATION
  15. METOCLOPRAMIDE DIHYDROCHLORIDE [Concomitant]
     Route: 065
     Dates: start: 20181204, end: 20181204
  16. EUCALYPTOL/LIMONENE/PINENE [Concomitant]
     Indication: OTITIS MEDIA ACUTE
     Route: 065
     Dates: start: 20181213

REACTIONS (1)
  - Autoimmune neuropathy [Not Recovered/Not Resolved]

NARRATIVE: CASE EVENT DATE: 20190103
